FAERS Safety Report 24095706 (Version 1)
Quarter: 2024Q3

REPORT INFORMATION
  Report Type: Other
  Country: GB (occurrence: None)
  Receive Date: 20240716
  Receipt Date: 20240716
  Transmission Date: 20241016
  Serious: Yes (Hospitalization)
  Sender: DEXCEL
  Company Number: GB-DEXPHARM-2024-2262

PATIENT
  Age: 70 Year
  Sex: Female

DRUGS (5)
  1. ISOSORBIDE MONONITRATE [Suspect]
     Active Substance: ISOSORBIDE MONONITRATE
     Dosage: 40 MG ONCE DAILY
  2. ISOSORBIDE MONONITRATE [Suspect]
     Active Substance: ISOSORBIDE MONONITRATE
     Dosage: 40 MG TWICE DAILY
  3. DILTIAZEM [Suspect]
     Active Substance: DILTIAZEM
     Dosage: 60 MG TWICE DAILY
  4. DILTIAZEM [Suspect]
     Active Substance: DILTIAZEM
     Dosage: 120 MG TWICE DAILY
  5. ISOSORBIDE MONONITRATE [Suspect]
     Active Substance: ISOSORBIDE MONONITRATE
     Dosage: 20 MG TWICE DAILY (EVENING DOSE TAKEN BEFORE BEDTIME)

REACTIONS (2)
  - Acute coronary syndrome [Recovered/Resolved]
  - Tachyphylaxis [Recovered/Resolved]
